FAERS Safety Report 12048480 (Version 1)
Quarter: 2016Q1

REPORT INFORMATION
  Report Type: Spontaneous
  Country: US (occurrence: US)
  Receive Date: 20160209
  Receipt Date: 20160209
  Transmission Date: 20160526
  Serious: No
  Sender: FDA-Public Use
  Company Number: US-PAR PHARMACEUTICAL, INC-2015SCPR014429

PATIENT

DRUGS (2)
  1. BUPROPION HYDROCHLORIDE XL [Suspect]
     Active Substance: BUPROPION HYDROCHLORIDE
     Indication: OBSESSIVE-COMPULSIVE DISORDER
     Dosage: 1 DF, OD
     Route: 048
     Dates: start: 201510, end: 20151020
  2. BUPROPION HYDROCHLORIDE XL [Suspect]
     Active Substance: BUPROPION HYDROCHLORIDE
     Indication: ANXIETY

REACTIONS (3)
  - Chest discomfort [Unknown]
  - Chest pain [Unknown]
  - Product use issue [Unknown]

NARRATIVE: CASE EVENT DATE: 201510
